FAERS Safety Report 9428041 (Version 1)
Quarter: 2013Q3

REPORT INFORMATION
  Report Type: Spontaneous
  Country: US (occurrence: US)
  Receive Date: 20130730
  Receipt Date: 20130730
  Transmission Date: 20140515
  Serious: No
  Sender: FDA-Public Use
  Company Number: US-ABBOTT-02P-163-0385045-00

PATIENT
  Age: 71 Year
  Sex: Male
  Weight: 71.73 kg

DRUGS (2)
  1. NIASPAN [Suspect]
     Indication: BLOOD CHOLESTEROL INCREASED
     Route: 048
     Dates: start: 20021126
  2. ACETYLSALICYLIC ACID [Concomitant]
     Indication: CARDIAC DISORDER

REACTIONS (1)
  - Flushing [Not Recovered/Not Resolved]
